FAERS Safety Report 16367852 (Version 1)
Quarter: 2019Q2

REPORT INFORMATION
  Report Type: Spontaneous
  Country: US (occurrence: US)
  Receive Date: 20190423
  Receipt Date: 20190423
  Transmission Date: 20190711
  Serious: Yes (Hospitalization)
  Sender: FDA-Public Use
  Company Number: None

PATIENT
  Age: 82 Year
  Sex: Female
  Weight: 50.8 kg

DRUGS (1)
  1. PRIMIDONE. [Suspect]
     Active Substance: PRIMIDONE
     Indication: SEIZURE
     Dosage: ?          QUANTITY:1 PILL;?
     Route: 048
     Dates: start: 195005, end: 20190419

REACTIONS (3)
  - Somnolence [None]
  - Toxicity to various agents [None]
  - Drug level above therapeutic [None]

NARRATIVE: CASE EVENT DATE: 20190320
